FAERS Safety Report 20313621 (Version 2)
Quarter: 2022Q4

REPORT INFORMATION
  Report Type: Spontaneous
  Country: US (occurrence: US)
  Receive Date: 20220109
  Receipt Date: 20221019
  Transmission Date: 20230112
  Serious: No
  Sender: FDA-Public Use
  Company Number: US-SA-SAC20220103000209

PATIENT
  Age: 37 Year
  Sex: Female

DRUGS (22)
  1. DUPIXENT [Suspect]
     Active Substance: DUPILUMAB
     Indication: Dermatitis atopic
     Dosage: 300 MG, QOW
     Route: 058
     Dates: start: 20210505
  2. BIOTIN [Concomitant]
     Active Substance: BIOTIN
     Indication: Vitamin B complex deficiency
     Dosage: 300 UNK
  3. BYETTA [Concomitant]
     Active Substance: EXENATIDE
     Dosage: 10 UNK
  4. CALCIUM [Concomitant]
     Active Substance: CALCIUM
     Dosage: 500 MG
  5. DESLORATADINE\PSEUDOEPHEDRINE SULFATE [Concomitant]
     Active Substance: DESLORATADINE\PSEUDOEPHEDRINE SULFATE
  6. FLONASE [Concomitant]
     Active Substance: FLUTICASONE PROPIONATE
     Dosage: UNK
  7. FORADIL [Concomitant]
     Active Substance: FORMOTEROL FUMARATE
     Indication: Asthma
     Dosage: UNK
  8. JANUMET [Concomitant]
     Active Substance: METFORMIN HYDROCHLORIDE\SITAGLIPTIN PHOSPHATE
  9. LIOTHYRONINE [Concomitant]
     Active Substance: LIOTHYRONINE
     Indication: Goitre
     Dosage: 375MG
  10. PHENTERMINE [Concomitant]
     Active Substance: PHENTERMINE
     Dosage: 05MG
  11. PULMICORT TURBUHALER [Concomitant]
     Active Substance: BUDESONIDE
     Dosage: UNK
  12. TOPAMAX [Concomitant]
     Active Substance: TOPIRAMATE
     Dosage: 100MG
  13. VENTOLIN HFA [Concomitant]
     Active Substance: ALBUTEROL SULFATE
     Indication: Asthma
     Dosage: 1000MG
  14. VITAMIN C [Concomitant]
     Active Substance: ASCORBIC ACID
     Dosage: 1000MG
  15. VITAMIN C [Concomitant]
     Active Substance: ASCORBIC ACID
     Dosage: 250MG
  16. VITAMIN D3 [Concomitant]
     Active Substance: CHOLECALCIFEROL
     Dosage: 1000MG
  17. IODINE [Concomitant]
     Active Substance: IODINE
  18. CYANOCOBALAMIN [Concomitant]
     Active Substance: CYANOCOBALAMIN
     Dosage: 1000MC G
  19. CALCIUM\VITAMIN D [Concomitant]
     Active Substance: CALCIUM\VITAMIN D
  20. MOMETASONE FUROATE [Concomitant]
     Active Substance: MOMETASONE FUROATE
  21. FERROUS SULFATE [Concomitant]
     Active Substance: FERROUS SULFATE
  22. SPIRONOLACTONE [Concomitant]
     Active Substance: SPIRONOLACTONE

REACTIONS (1)
  - Injection site dryness [Not Recovered/Not Resolved]
